FAERS Safety Report 8505403-1 (Version None)
Quarter: 2012Q3

REPORT INFORMATION
  Report Type: 
  Country: None (occurrence: None)
  Receive Date: 20120712
  Receipt Date: 20120709
  Transmission Date: 20120928
  Serious: Yes (Other)
  Sender: FDA-Public Use
  Company Number: US-PFIZER INC-2012124033

PATIENT
  Sex: Male

DRUGS (9)
  1. PULMICORT [Concomitant]
     Indication: ASTHMA
     Dosage: UNK, TWICE A DAY
  2. LYRICA [Suspect]
     Indication: POST HERPETIC NEURALGIA
     Dosage: 75 MG, 2X/DAY
     Route: 048
     Dates: start: 20120521, end: 20120523
  3. VIAGRA [Concomitant]
     Indication: ERECTILE DYSFUNCTION
     Dosage: UNK, AS NEEDED (PRN)
  4. CLARITIN-D [Concomitant]
     Dosage: UNK, AS NEEDED (PRN)
  5. FLOMAX [Concomitant]
     Dosage: 0.4 UNK, ONCE A DAY
  6. LISINOPRIL [Concomitant]
  7. ALBUTEROL [Concomitant]
     Dosage: UNK, TWICE A DAY
  8. LISINOPRIL [Concomitant]
     Indication: HYPERTENSION
     Dosage: 20 MG, TWICE A DAY
  9. LYRICA [Suspect]
     Indication: NEURALGIA
     Dosage: 75 MG, 1X/DAY
     Route: 048
     Dates: start: 20120521, end: 20120522

REACTIONS (2)
  - ASTHMA [None]
  - DYSPNOEA [None]
